FAERS Safety Report 6622814-X (Version None)
Quarter: 2010Q1

REPORT INFORMATION
  Report Type: 
  Country: None (occurrence: None)
  Receive Date: 20100310
  Receipt Date: 20100302
  Transmission Date: 20100710
  Serious: Yes (Other)
  Sender: FDA-Public Use
  Company Number: US-JNJFOC-20091205241

PATIENT
  Age: 34 Year
  Sex: Male

DRUGS (2)
  1. LEVAQUIN [Suspect]
     Indication: SINUSITIS
     Route: 065
     Dates: start: 20090101, end: 20090101
  2. LEVAQUIN [Suspect]
     Route: 065
     Dates: start: 20090101, end: 20090101

REACTIONS (9)
  - ABNORMAL DREAMS [None]
  - ANXIETY [None]
  - DEAFNESS [None]
  - DECREASED APPETITE [None]
  - DEPRESSION [None]
  - HEADACHE [None]
  - PAIN IN EXTREMITY [None]
  - SUICIDAL IDEATION [None]
  - WEIGHT DECREASED [None]
